FAERS Safety Report 4887849-6 (Version None)
Quarter: 2006Q1

REPORT INFORMATION
  Report Type: 
  Country: None (occurrence: None)
  Receive Date: 20060123
  Receipt Date: 20050325
  Transmission Date: 20060701
  Serious: Yes (Death, Hospitalization)
  Sender: FDA-Public Use
  Company Number: US-MERCK-0503USA04999

PATIENT
  Age: 58 Year
  Sex: Female
  Weight: 63 kg

DRUGS (16)
  1. VIOXX [Suspect]
     Indication: BACK PAIN
     Route: 048
     Dates: start: 20030101, end: 20030315
  2. ESTRATEST [Concomitant]
     Route: 065
  3. VASOTEC [Concomitant]
     Route: 048
  4. [THERAPY UNSPECIFIED] [Concomitant]
     Route: 065
  5. PREDNISONE [Concomitant]
     Route: 065
  6. INDAPAMIDE [Concomitant]
     Route: 065
  7. ATENOLOL [Concomitant]
     Route: 048
  8. ZOLOFT [Concomitant]
     Route: 065
  9. NEXIUM [Concomitant]
     Route: 065
  10. PROCHLORPERAZINE [Concomitant]
     Route: 065
  11. CLONAZEPAM [Concomitant]
     Route: 065
  12. MAXAIR [Concomitant]
     Route: 065
  13. ZYPREXA [Concomitant]
     Route: 065
  14. TEGRETOL [Concomitant]
     Route: 065
  15. PREVACID [Concomitant]
     Route: 065
  16. LOZOL [Concomitant]
     Route: 065

REACTIONS (13)
  - ACUTE MYOCARDIAL INFARCTION [None]
  - ANOXIC ENCEPHALOPATHY [None]
  - BRONCHOSPASM [None]
  - CARDIAC ARREST [None]
  - CARDIAC TAMPONADE [None]
  - CEREBROVASCULAR ACCIDENT [None]
  - DEATH [None]
  - FLAIL CHEST [None]
  - INTRACARDIAC THROMBUS [None]
  - MENTAL DISORDER [None]
  - RESPIRATORY FAILURE [None]
  - RIB FRACTURE [None]
  - VENTRICULAR HYPERTROPHY [None]
